FAERS Safety Report 23494020 (Version 1)
Quarter: 2024Q1

REPORT INFORMATION
  Report Type: Spontaneous
  Country: CN (occurrence: None)
  Receive Date: 20240207
  Receipt Date: 20240207
  Transmission Date: 20240409
  Serious: Yes (Other)
  Sender: FDA-Public Use
  Company Number: 2024A026955

PATIENT
  Age: 20089 Day
  Sex: Female
  Weight: 55 kg

DRUGS (1)
  1. FULVESTRANT [Suspect]
     Active Substance: FULVESTRANT
     Indication: Chemotherapy
     Route: 041
     Dates: start: 20221024, end: 20221024

REACTIONS (1)
  - Myelosuppression [Unknown]
